FAERS Safety Report 21075711 (Version 1)
Quarter: 2022Q3

REPORT INFORMATION
  Report Type: Spontaneous
  Country: US (occurrence: None)
  Receive Date: 20220712
  Receipt Date: 20220712
  Transmission Date: 20221026
  Serious: No
  Sender: FDA-Public Use
  Company Number: None

PATIENT
  Age: 75 Year
  Sex: Female
  Weight: 73.03 kg

DRUGS (18)
  1. VERZENIO [Suspect]
     Active Substance: ABEMACICLIB
     Indication: Breast cancer female
     Dosage: FREQUENCY : TWICE A DAY;?
     Route: 048
     Dates: start: 202205
  2. ALPRAZOLAM [Concomitant]
     Active Substance: ALPRAZOLAM
  3. AMOXICILLIN-Pot [Concomitant]
  4. ATORVASTATIN CALCIUM [Concomitant]
  5. CALCIUM [Concomitant]
     Active Substance: CALCIUM
  6. CEFTRIAXONE [Concomitant]
  7. CITALOPRAM [Concomitant]
  8. HYDROBROMIDE [Concomitant]
  9. FLUTICASONE [Concomitant]
  10. HYDROCHLOROTHIAZIDE [Concomitant]
  11. LEVOFLOXACIN [Concomitant]
     Active Substance: LEVOFLOXACIN
  12. LEVOTHYROXINE SODIUM [Concomitant]
  13. LOSARTAN POTASSIUM [Concomitant]
  14. METFORMIN HCL [Concomitant]
  15. METHYIPREDNISOLONE [Concomitant]
  16. PREMARIN VAGINAL [Concomitant]
  17. VITAMIN C [Concomitant]
  18. VITAMIN D [Concomitant]
     Active Substance: VITAMIN D NOS

REACTIONS (2)
  - Faeces discoloured [None]
  - Pain [None]
